FAERS Safety Report 10230451 (Version 2)
Quarter: 2014Q2

REPORT INFORMATION
  Report Type: Spontaneous
  Country: US (occurrence: US)
  Receive Date: 20140611
  Receipt Date: 20140611
  Transmission Date: 20141212
  Serious: No
  Sender: FDA-Public Use
  Company Number: US-INCYTE CORPORATION-2014IN000502

PATIENT
  Sex: Female
  Weight: 47.62 kg

DRUGS (1)
  1. JAKAFI [Suspect]
     Dosage: 5 MG, BID
     Route: 048
     Dates: start: 20131007

REACTIONS (1)
  - Surgery [Unknown]
